FAERS Safety Report 20722281 (Version 1)
Quarter: 2022Q2

REPORT INFORMATION
  Report Type: Spontaneous
  Country: US (occurrence: US)
  Receive Date: 20220418
  Receipt Date: 20220418
  Transmission Date: 20220721
  Serious: No
  Sender: FDA-Public Use
  Company Number: US-PFIZER INC-202101317616

PATIENT
  Age: 53 Year
  Sex: Female

DRUGS (2)
  1. VYNDAMAX [Suspect]
     Active Substance: TAFAMIDIS
     Dosage: UNK
     Dates: start: 202009
  2. ONPATTRO [Concomitant]
     Active Substance: PATISIRAN SODIUM
     Dosage: UNK

REACTIONS (1)
  - Condition aggravated [Unknown]
